FAERS Safety Report 9775615 (Version 1)
Quarter: 2013Q4

REPORT INFORMATION
  Report Type: Spontaneous
  Country: PT (occurrence: PT)
  Receive Date: 20131220
  Receipt Date: 20131220
  Transmission Date: 20140711
  Serious: Yes (Life-Threatening)
  Sender: FDA-Public Use
  Company Number: PT-TEVA-450635ISR

PATIENT
  Age: 61 Year
  Sex: Male
  Weight: 64 kg

DRUGS (13)
  1. OXALIPLATINA TEVA [Suspect]
     Indication: COLON CANCER
     Dosage: CONCENTRATE FOR SOLUTION FOR INFUSION
     Route: 040
     Dates: start: 20131113, end: 20131113
  2. ROSILAN [Concomitant]
     Indication: COLON CANCER
     Route: 048
  3. ESOMEPRAZOL [Concomitant]
     Indication: COLON CANCER
  4. CIPROXINA [Concomitant]
     Indication: COLON CANCER
     Route: 048
  5. OXALIPLATINA HOSPIRA [Concomitant]
     Indication: COLON CANCER
     Dosage: CONCENTRATE FOR SOLUTION FOR INFUSION
     Route: 042
     Dates: start: 20131030, end: 20131030
  6. OXALIPLATINA ACTAVIS [Concomitant]
     Indication: COLON CANCER
     Dosage: CONCENTRATE FOR SOLUTION FOR INFUSION
     Route: 042
     Dates: start: 20131016, end: 20131016
  7. FLUOROURACILO [Concomitant]
     Indication: COLON CANCER
     Route: 042
     Dates: start: 20131016
  8. FOLINATO DE CALCIO TEVA [Concomitant]
     Indication: COLON CANCER
     Route: 042
     Dates: start: 20131016, end: 20131016
  9. AVASTIN [Concomitant]
     Indication: COLON CANCER
     Dosage: CONCENTRATE FOR SOLUTION FOR INFUSION
     Route: 042
     Dates: start: 20131016, end: 20131016
  10. GRANISSETROM ACTAVIS [Concomitant]
     Indication: PROPHYLAXIS
     Route: 048
     Dates: start: 20131016, end: 20131016
  11. FORTECORTIN [Concomitant]
     Indication: PROPHYLAXIS
     Route: 048
     Dates: start: 20131016, end: 20131016
  12. SOLU-CORTEF [Concomitant]
     Indication: EMERGENCY CARE
     Dosage: POWDER AND SOLVENT FOR SOLUTION FOR INJECTION
     Route: 042
     Dates: start: 20131030, end: 20131030
  13. TAVIST [Concomitant]
     Indication: EMERGENCY CARE
     Route: 042
     Dates: start: 20131030, end: 20131030

REACTIONS (8)
  - Cough [Recovered/Resolved]
  - Dyspnoea [Recovered/Resolved]
  - Back pain [Recovered/Resolved]
  - Oxygen saturation decreased [Recovered/Resolved]
  - Erythema [Recovered/Resolved]
  - Urticaria [Recovered/Resolved]
  - Livedo reticularis [Recovered/Resolved]
  - Product substitution issue [Unknown]
